FAERS Safety Report 7965549-3 (Version None)
Quarter: 2011Q4

REPORT INFORMATION
  Report Type: 
  Country: None (occurrence: None)
  Receive Date: 20111208
  Receipt Date: 20111201
  Transmission Date: 20120403
  Serious: Yes (Other)
  Sender: FDA-Public Use
  Company Number: US-JNJFOC-20111202097

PATIENT
  Sex: Female

DRUGS (5)
  1. SEROQUEL XR [Concomitant]
     Route: 048
  2. YAZ [Concomitant]
     Route: 048
  3. INVEGA [Suspect]
     Route: 048
     Dates: start: 20090101, end: 20111201
  4. INVEGA [Suspect]
     Indication: PRODUCT USED FOR UNKNOWN INDICATION
     Route: 048
  5. TOPAMAX [Concomitant]
     Route: 048

REACTIONS (1)
  - OCULOGYRIC CRISIS [None]
